FAERS Safety Report 21638755 (Version 3)
Quarter: 2023Q4

REPORT INFORMATION
  Report Type: Spontaneous
  Country: US (occurrence: US)
  Receive Date: 20221124
  Receipt Date: 20231130
  Transmission Date: 20240110
  Serious: Yes (Other)
  Sender: FDA-Public Use
  Company Number: US-PFIZER INC-PV202200109472

PATIENT
  Age: 63 Year
  Sex: Female

DRUGS (1)
  1. XELJANZ [Suspect]
     Active Substance: TOFACITINIB CITRATE
     Dosage: 5 MG

REACTIONS (5)
  - Knee arthroplasty [Unknown]
  - Illness [Unknown]
  - Paranasal sinus hypersecretion [Unknown]
  - Seasonal allergy [Unknown]
  - Herpes zoster [Unknown]
